FAERS Safety Report 6818410-1 (Version None)
Quarter: 2010Q3

REPORT INFORMATION
  Report Type: 
  Country: None (occurrence: None)
  Receive Date: 20100706
  Receipt Date: 20080125
  Transmission Date: 20110219
  Serious: No
  Sender: FDA-Public Use
  Company Number: US-PFIZER INC-2007106813

PATIENT
  Sex: Female
  Weight: 105 kg

DRUGS (3)
  1. ZITHROMAX [Suspect]
     Indication: ASTHMA
     Route: 048
     Dates: start: 20071215, end: 20071215
  2. PREDNISONE [Concomitant]
  3. XOPENEX [Concomitant]
     Route: 055

REACTIONS (1)
  - THROAT IRRITATION [None]
